FAERS Safety Report 10457096 (Version 1)
Quarter: 2014Q3

REPORT INFORMATION
  Report Type: Spontaneous
  Country: CH (occurrence: None)
  Receive Date: 20140912
  Receipt Date: 20140912
  Transmission Date: 20150326
  Serious: Yes (Other)
  Sender: FDA-Public Use
  Company Number: FORT20140189

PATIENT
  Sex: Male

DRUGS (1)
  1. FORTESTA [Suspect]
     Active Substance: TESTOSTERONE
     Indication: PRODUCT USED FOR UNKNOWN INDICATION
     Route: 061

REACTIONS (1)
  - Testicular atrophy [None]
